FAERS Safety Report 11272714 (Version 2)
Quarter: 2015Q3

REPORT INFORMATION
  Report Type: Spontaneous
  Country: US (occurrence: US)
  Receive Date: 20150715
  Receipt Date: 20150716
  Transmission Date: 20151125
  Serious: Yes (Hospitalization, Other)
  Sender: FDA-Public Use
  Company Number: US-009507513-1507USA004787

PATIENT
  Age: 23 Year
  Sex: Female
  Weight: 83.45 kg

DRUGS (1)
  1. NEXPLANON [Suspect]
     Active Substance: ETONOGESTREL
     Indication: CONTRACEPTION
     Dosage: 1 IMPLANT PER 3 YEARS
     Route: 030
     Dates: start: 20140326

REACTIONS (10)
  - General anaesthesia [Unknown]
  - Device dislocation [Not Recovered/Not Resolved]
  - Surgery [Unknown]
  - Medical device complication [Not Recovered/Not Resolved]
  - Pregnancy with implant contraceptive [Recovered/Resolved]
  - Device difficult to use [Not Recovered/Not Resolved]
  - Weight increased [Not Recovered/Not Resolved]
  - Scar [Unknown]
  - Incorrect route of drug administration [Not Recovered/Not Resolved]
  - Device deployment issue [Not Recovered/Not Resolved]

NARRATIVE: CASE EVENT DATE: 20140326
